FAERS Safety Report 4867886-8 (Version None)
Quarter: 2005Q4

REPORT INFORMATION
  Report Type: 
  Country: None (occurrence: None)
  Receive Date: 20051227
  Receipt Date: 20051215
  Transmission Date: 20060501
  Serious: Yes (Hospitalization)
  Sender: FDA-Public Use
  Company Number: JP-JNJFOC-20051101269

PATIENT
  Age: 37 Year
  Sex: Male
  Weight: 92 kg

DRUGS (4)
  1. RISPERDAL [Suspect]
     Indication: SCHIZOPHRENIA
     Dosage: 25 MG, INTRAMUSCULAR
     Route: 030
     Dates: start: 20050509, end: 20051010
  2. RISPERIDONE [Concomitant]
  3. AKINETON [Concomitant]
  4. EURODIN (ESTAZOLA) TABLETS [Concomitant]

REACTIONS (6)
  - AGITATION [None]
  - ECONOMIC PROBLEM [None]
  - HALLUCINATION [None]
  - HALLUCINATION, AUDITORY [None]
  - INSOMNIA [None]
  - PHYSICAL ASSAULT [None]
